FAERS Safety Report 24961715 (Version 3)
Quarter: 2025Q1

REPORT INFORMATION
  Report Type: Spontaneous
  Country: US (occurrence: US)
  Receive Date: 20250212
  Receipt Date: 20250321
  Transmission Date: 20250409
  Serious: Yes (Hospitalization, Other)
  Sender: AURINIA PHARMACEUTICALS
  Company Number: US-AURINIA PHARMACEUTICALS INC.-AUR-007917

PATIENT
  Sex: Female

DRUGS (3)
  1. LUPKYNIS [Suspect]
     Active Substance: VOCLOSPORIN
     Indication: Lupus nephritis
     Dosage: 15.8 MILLIGRAM, BID
     Route: 048
     Dates: start: 20240913
  2. LUPKYNIS [Suspect]
     Active Substance: VOCLOSPORIN
     Dosage: 7.9 MILLIGRAM, BID
     Route: 048
     Dates: start: 202502
  3. LUPKYNIS [Suspect]
     Active Substance: VOCLOSPORIN
     Route: 048

REACTIONS (5)
  - Cerebrovascular accident [Recovering/Resolving]
  - Dyspnoea [Unknown]
  - Balance disorder [Unknown]
  - Fatigue [Unknown]
  - Off label use [Unknown]
